FAERS Safety Report 8206283-4 (Version None)
Quarter: 2012Q1

REPORT INFORMATION
  Report Type: 
  Country: None (occurrence: None)
  Receive Date: 20120313
  Receipt Date: 20120228
  Transmission Date: 20120608
  Serious: Yes (Other)
  Sender: FDA-Public Use
  Company Number: PHEH2012US001849

PATIENT
  Sex: Female
  Weight: 77.098 kg

DRUGS (15)
  1. TASIGNA [Suspect]
     Dosage: 150 MG, BID
     Route: 048
     Dates: start: 20120102
  2. HYDRALAZINE HYDROCHLORIDE [Concomitant]
     Dosage: 100 MG, TID
  3. COUMADIN [Concomitant]
     Dosage: UNK UKN, UNK
  4. TOPROL-XL [Concomitant]
     Dosage: 50 MG, UNK
     Route: 048
  5. CALCIUM CARBONATE [Concomitant]
     Dosage: 1 DF, UNK
     Route: 048
  6. SPIRONOLACTONE [Concomitant]
     Dosage: 1 DF, UNK
     Route: 048
  7. DIGOXIN [Concomitant]
     Dosage: 0.125 MG, UNK
     Route: 048
  8. LASIX [Concomitant]
     Dosage: 20 MG, TID
  9. LOVAZA [Concomitant]
     Dosage: 1 DF, UNK
     Route: 048
  10. VITAMIN B COMPLEX CAP [Concomitant]
     Dosage: 1 DF, UNK
     Route: 048
  11. TASIGNA [Suspect]
     Indication: CHRONIC MYELOID LEUKAEMIA
     Route: 048
     Dates: start: 20111114, end: 20111115
  12. ISOSORBIDE MONONITRATE [Concomitant]
     Dosage: 30 MG, UNK
     Route: 048
  13. ALLOPURINOL [Concomitant]
     Dosage: UNK UKN, UNK
     Route: 048
  14. TRAVATAN [Concomitant]
     Dosage: UNK UKN, UNK
  15. VERAPAMIL [Concomitant]
     Dosage: 120 MG, UNK
     Route: 048

REACTIONS (2)
  - ABDOMINAL PAIN UPPER [None]
  - WHITE BLOOD CELL COUNT INCREASED [None]
